FAERS Safety Report 5431762-2 (Version None)
Quarter: 2007Q3

REPORT INFORMATION
  Report Type: 
  Country: None (occurrence: None)
  Receive Date: 20070830
  Receipt Date: 20070821
  Transmission Date: 20080115
  Serious: Yes (Hospitalization, Other)
  Sender: FDA-Public Use
  Company Number: BR-SHR-BR-2005-016058

PATIENT
  Age: 47 Year
  Sex: Male
  Weight: 62 kg

DRUGS (9)
  1. BETAFERON [Suspect]
     Indication: RELAPSING-REMITTING MULTIPLE SCLEROSIS
     Dosage: 250 A?G, EVERY 2D
     Route: 058
     Dates: start: 20050621, end: 20050731
  2. BETAFERON [Suspect]
     Dosage: .25 ML, EVERY 2D
     Route: 058
     Dates: start: 20050801, end: 20050822
  3. IBUPROFEN [Concomitant]
     Dosage: 400 MG, 2X/DAY/QOD
     Route: 048
     Dates: start: 20050621, end: 20050710
  4. IBUPROFEN [Concomitant]
     Dosage: 400 MG BID, QOD
     Dates: start: 20050715, end: 20050822
  5. IBUPROFEN [Concomitant]
     Dosage: 800 MG, 4X/DAY
     Route: 048
     Dates: start: 20050711, end: 20050714
  6. CYCLOBENZAPRINE HCL [Concomitant]
     Dosage: 10 MG, 2X/DAY
     Route: 048
     Dates: start: 20050722, end: 20050725
  7. BACLOFEN [Concomitant]
     Dosage: 20 MG, 2X/DAY
     Route: 048
     Dates: start: 20050726, end: 20050728
  8. CARBAMAZEPINE [Concomitant]
     Dosage: 400 MG, 2X/DAY
     Route: 048
     Dates: start: 20021210, end: 20050701
  9. FOLIC ACID [Concomitant]
     Dosage: 5 MG, 2X/WEEK
     Route: 048
     Dates: start: 20050715, end: 20050901

REACTIONS (4)
  - AZOTAEMIA [None]
  - OSTEOMYELITIS [None]
  - URINARY TRACT INFECTION [None]
  - UROSEPSIS [None]
